FAERS Safety Report 10036087 (Version 5)
Quarter: 2014Q2

REPORT INFORMATION
  Report Type: Report from Study
  Country: US (occurrence: US)
  Receive Date: 20140325
  Receipt Date: 20140423
  Transmission Date: 20141212
  Serious: Yes (Hospitalization)
  Sender: FDA-Public Use
  Company Number: US-PFIZER INC-2014017326

PATIENT
  Age: 61 Year
  Sex: Male
  Weight: 85.26 kg

DRUGS (20)
  1. TEMSIROLIMUS [Suspect]
     Indication: HEPATOCELLULAR CARCINOMA
     Dosage: 25 MG, WEEKLY
     Route: 042
     Dates: start: 20130926, end: 20140109
  2. BENADRYL [Concomitant]
     Indication: PREMEDICATION
     Dosage: 50 MG, WEEKLY
     Route: 042
     Dates: start: 20130926, end: 20140109
  3. BENADRYL [Concomitant]
     Indication: PROPHYLAXIS
  4. NORVASC [Concomitant]
     Indication: HYPERTENSION
     Dosage: 10 MG, DAILY, Q DAY
     Route: 048
     Dates: start: 2000
  5. LISINOPRIL [Concomitant]
     Indication: HYPERTENSION
     Dosage: 1 DF (TAB), 1X/DAY
     Route: 048
     Dates: start: 20130822
  6. TRIMATRENE HYDROCHLOROTHIAZIDE [Concomitant]
     Indication: HYPERTENSION
     Dosage: TRIAMTERENE 37.5 MG, HYDROCHLOROTHIAZIDE 25 MG
     Route: 048
     Dates: start: 2000
  7. OMEPRAZOLE [Concomitant]
     Indication: GASTROOESOPHAGEAL REFLUX DISEASE
     Dosage: 20 MG, 1X/DAY AND AS NEEDED
     Route: 048
     Dates: start: 2000
  8. LORTAB [Concomitant]
     Indication: BONE PAIN
     Dosage: HYDROCODONE BITARTRATE 5MG/ PARACETAMOL 500MG^ Q4-6 HRS PRN, EVERY 4-6 HRS PRN
     Route: 048
     Dates: start: 2010, end: 20140109
  9. LORTAB [Concomitant]
     Indication: ARTHRITIS
  10. MORPHINE [Concomitant]
     Indication: BONE PAIN
     Dosage: 30 MG, 2X/DAY
     Route: 048
     Dates: start: 2010
  11. MORPHINE [Concomitant]
     Indication: ARTHRITIS
  12. TYLENOL [Concomitant]
     Indication: PYREXIA
     Dosage: 1-2 TABS
     Route: 048
     Dates: start: 20130928
  13. MEGACE [Concomitant]
     Indication: DECREASED APPETITE
     Dosage: 5 ML, 1X/DAY
     Route: 048
     Dates: start: 20131004, end: 20131013
  14. MEGACE [Concomitant]
     Dosage: 5 ML, 1X/DAY
     Route: 048
     Dates: start: 20131212
  15. MOXIFLOXACIN [Concomitant]
     Indication: PYREXIA
     Dosage: 400 MG, 1X/DAY
     Route: 048
     Dates: start: 20131010, end: 20131019
  16. METFORMIN [Concomitant]
     Indication: DIABETES MELLITUS
     Dosage: 250 MG, 1X/DAY
     Route: 048
     Dates: start: 20131018
  17. MAGIC MOUTHWASH [Concomitant]
     Indication: MUCOSAL INFLAMMATION
     Dosage: 5 CUBIC CENTIMETER, MAGIC MOUTH WAS EQUAL PART 3 : LIDOCAINE, MAALOX , BENADRYL
     Route: 048
     Dates: start: 20131024
  18. FLUCONAZOLE [Concomitant]
     Indication: RASH
     Dosage: 200 MG, 1X/DAY
     Route: 048
     Dates: start: 20131024, end: 20131029
  19. THORAZINE [Concomitant]
     Indication: HICCUPS
     Dosage: 25 MG, Q6H AS NEEDED
     Route: 048
     Dates: start: 20131224
  20. OXYCODONE [Concomitant]
     Indication: PAIN
     Dosage: 5 MG, Q4H AS NEEDED
     Route: 048
     Dates: start: 20140109

REACTIONS (3)
  - Enterocolitis infectious [Recovered/Resolved]
  - Dyspnoea [Not Recovered/Not Resolved]
  - Oedema [Not Recovered/Not Resolved]
